FAERS Safety Report 5513346-0 (Version None)
Quarter: 2007Q4

REPORT INFORMATION
  Report Type: 
  Country: None (occurrence: None)
  Receive Date: 20071112
  Receipt Date: 20071031
  Transmission Date: 20080405
  Serious: Yes (Other)
  Sender: FDA-Public Use
  Company Number: FR-PFIZER INC-2007092036

PATIENT
  Age: 56 Year
  Sex: Male
  Weight: 70 kg

DRUGS (5)
  1. CHAMPIX [Suspect]
     Indication: SMOKING CESSATION THERAPY
     Route: 048
     Dates: start: 20070801, end: 20070914
  2. BACLOFEN [Concomitant]
  3. TAMSULOSIN HCL [Concomitant]
  4. SALBUTAMOL SULFATE [Concomitant]
  5. MAGNESIUM HYDROXIDE TAB [Concomitant]

REACTIONS (7)
  - AGGRESSION [None]
  - DIARRHOEA [None]
  - DIZZINESS [None]
  - FEELING COLD [None]
  - HOT FLUSH [None]
  - VOMITING [None]
  - WEIGHT DECREASED [None]
